FAERS Safety Report 6794355-0 (Version None)
Quarter: 2010Q2

REPORT INFORMATION
  Report Type: 
  Country: None (occurrence: None)
  Receive Date: 20100625
  Receipt Date: 20100616
  Transmission Date: 20101027
  Serious: No
  Sender: FDA-Public Use
  Company Number: US-BIOGENIDEC-2010BI020772

PATIENT
  Age: 67 Year
  Sex: Male

DRUGS (4)
  1. TYSABRI [Suspect]
     Indication: MULTIPLE SCLEROSIS
     Route: 042
     Dates: start: 20050207, end: 20050101
  2. TYSABRI [Suspect]
     Route: 042
     Dates: start: 20061205
  3. AVONEX [Concomitant]
     Indication: MULTIPLE SCLEROSIS
     Route: 030
  4. BETASERON [Concomitant]
     Indication: MULTIPLE SCLEROSIS
     Dates: start: 20050601, end: 20061101

REACTIONS (1)
  - DYSSTASIA [None]
